FAERS Safety Report 22045886 (Version 2)
Quarter: 2023Q1

REPORT INFORMATION
  Report Type: Report from Study
  Country: AU (occurrence: AU)
  Receive Date: 20230228
  Receipt Date: 20230330
  Transmission Date: 20230418
  Serious: Yes (Hospitalization)
  Sender: FDA-Public Use
  Company Number: AU-MYLANLABS-2023M1019566

PATIENT
  Age: 85 Year
  Sex: Female

DRUGS (24)
  1. BISOPROLOL [Suspect]
     Active Substance: BISOPROLOL
     Indication: Product used for unknown indication
     Dosage: UNK
     Route: 065
     Dates: start: 20200716, end: 20210711
  2. ONDANSETRON [Suspect]
     Active Substance: ONDANSETRON
     Indication: Product used for unknown indication
     Dosage: UNK
     Route: 065
  3. PREGABALIN [Suspect]
     Active Substance: PREGABALIN
     Indication: Product used for unknown indication
     Dosage: UNK
     Route: 065
  4. METHADONE [Suspect]
     Active Substance: METHADONE HYDROCHLORIDE
     Indication: Product used for unknown indication
     Dosage: UNK
     Route: 065
  5. TAPENTADOL [Suspect]
     Active Substance: TAPENTADOL
     Indication: Product used for unknown indication
     Dosage: UNK
     Route: 065
  6. MIDODRINE [Suspect]
     Active Substance: MIDODRINE
     Indication: Product used for unknown indication
     Dosage: UNK
     Route: 065
  7. PREGABALIN [Concomitant]
     Active Substance: PREGABALIN
     Indication: Back pain
     Dosage: 75 MILLIGRAM, BID
     Route: 048
     Dates: start: 2010
  8. TAPENTADOL [Concomitant]
     Active Substance: TAPENTADOL
     Indication: Back pain
     Dosage: 200 MILLIGRAM, QD
     Route: 048
     Dates: start: 2010, end: 202107
  9. BISOPROLOL [Concomitant]
     Active Substance: BISOPROLOL
     Indication: Atrial fibrillation
     Dosage: 2.5 MILLIGRAM, QD
     Route: 048
     Dates: start: 20201014, end: 20210721
  10. BISOPROLOL [Concomitant]
     Active Substance: BISOPROLOL
     Indication: Cardiac failure
     Dosage: 7.5 MILLIGRAM, QD (22-JUL-2021)
     Route: 048
  11. METHADONE [Concomitant]
     Active Substance: METHADONE HYDROCHLORIDE
     Indication: Product used for unknown indication
     Dosage: 2.5 MILLIGRAM, QD (2.5 MILLIGRAM IN THE EVENING)
     Route: 065
  12. MIDODRINE [Concomitant]
     Active Substance: MIDODRINE
     Indication: Cardiac failure
     Dosage: 5 MILLIGRAM, TID (START DATE: ??-FEB-2021)
     Route: 048
  13. APIXABAN [Concomitant]
     Active Substance: APIXABAN
     Indication: Atrial fibrillation
     Dosage: 5 MILLIGRAM, BID
     Route: 048
     Dates: start: 2010, end: 202107
  14. SPIRONOLACTONE [Concomitant]
     Active Substance: SPIRONOLACTONE
     Indication: Cardiac failure
     Dosage: 12.5 MILLIGRAM, QD (21-FEB-2021)
     Route: 048
     Dates: start: 202102
  15. FUROSEMIDE [Concomitant]
     Active Substance: FUROSEMIDE
     Indication: Cardiac failure
     Dosage: 40 MILLIGRAM, BID (START DAT: 09-JUN-2021)
     Route: 048
  16. MOMETASONE [Concomitant]
     Active Substance: MOMETASONE
     Indication: Chronic obstructive pulmonary disease
     Dosage: 1 DOSAGE FORM, QD (1 SPRAY DOSE)
     Route: 045
     Dates: start: 2020
  17. CHOLECALCIFEROL [Concomitant]
     Active Substance: CHOLECALCIFEROL
     Indication: Osteoporosis
     Dosage: 25 MICROGRAM, QD
     Route: 065
  18. MAGNESIUM ASPARTATE [Concomitant]
     Active Substance: MAGNESIUM ASPARTATE
     Indication: Product used for unknown indication
     Dosage: 500 MILLIGRAM, QD (BED TIME)
     Route: 048
  19. DENOSUMAB [Concomitant]
     Active Substance: DENOSUMAB
     Indication: Product used for unknown indication
     Dosage: 60 MILLIGRAM PER MILLILITRE ONCE EVERY 6 MONTHS
     Route: 058
  20. MOVICOL [Concomitant]
     Active Substance: POLYETHYLENE GLYCOL 3350\POTASSIUM CHLORIDE\SODIUM BICARBONATE\SODIUM CHLORIDE
     Indication: Prophylaxis
     Dosage: 1 DOSAGE FORM (1 SACHET)
     Route: 048
  21. PANTOPRAZOLE [Concomitant]
     Active Substance: PANTOPRAZOLE
     Indication: Prophylaxis
     Dosage: 20 MILLIGRAM, QD
     Route: 065
  22. ACETAMINOPHEN [Concomitant]
     Active Substance: ACETAMINOPHEN
     Indication: Product used for unknown indication
     Dosage: 1330 MILLIGRAM, QD (THREE TIMES QD AS NEEDED (PRN))
     Route: 048
  23. POTASSIUM CHLORIDE [Concomitant]
     Active Substance: POTASSIUM CHLORIDE
     Indication: Product used for unknown indication
     Dosage: 1200 MILLIGRAM, BID
     Route: 048
  24. UBIDECARENONE [Concomitant]
     Active Substance: UBIDECARENONE
     Indication: Product used for unknown indication
     Dosage: 150 MILLIGRAM, QD
     Route: 048

REACTIONS (8)
  - Fall [Unknown]
  - Ankle fracture [Recovered/Resolved]
  - Troponin increased [Recovered/Resolved]
  - Atrial fibrillation [Recovered/Resolved]
  - Orthostatic hypotension [Unknown]
  - Dizziness [Unknown]
  - Balance disorder [Unknown]
  - Therapy interrupted [Unknown]

NARRATIVE: CASE EVENT DATE: 20210216
